FAERS Safety Report 9723149 (Version 1)
Quarter: 2013Q4

REPORT INFORMATION
  Report Type: Spontaneous
  Country: DE (occurrence: None)
  Receive Date: 20131126
  Receipt Date: 20131126
  Transmission Date: 20140711
  Serious: Yes (Hospitalization, Disabling)
  Sender: FDA-Public Use
  Company Number: SYM-2013-13105

PATIENT
  Age: 21 Year
  Sex: Female

DRUGS (2)
  1. DICLOFENAC [Suspect]
     Indication: BACK PAIN
  2. TETRAZEPAM (TETRAZEPAM) (TETRAZEPAM) [Concomitant]

REACTIONS (2)
  - Porphyria [None]
  - Aphasia [None]
